FAERS Safety Report 8464871-4 (Version None)
Quarter: 2012Q2

REPORT INFORMATION
  Report Type: 
  Country: None (occurrence: None)
  Receive Date: 20120626
  Receipt Date: 20120620
  Transmission Date: 20120825
  Serious: Yes (Death, Hospitalization)
  Sender: FDA-Public Use
  Company Number: FR-ELI_LILLY_AND_COMPANY-FR201206006454

PATIENT
  Sex: Male

DRUGS (2)
  1. ALIMTA [Suspect]
     Indication: LUNG ADENOCARCINOMA
     Dosage: 885 MG, UNK
     Route: 042
     Dates: start: 20120406, end: 20120406
  2. CARBOPLATIN [Concomitant]
     Indication: LUNG ADENOCARCINOMA
     Dosage: 809 MG, UNK
     Dates: start: 20120406, end: 20120406

REACTIONS (4)
  - PANCYTOPENIA [None]
  - MUCOSAL INFLAMMATION [None]
  - GASTROINTESTINAL HAEMORRHAGE [None]
  - FEBRILE BONE MARROW APLASIA [None]
